FAERS Safety Report 16328103 (Version 1)
Quarter: 2019Q2

REPORT INFORMATION
  Report Type: Spontaneous
  Country: IT (occurrence: IT)
  Receive Date: 20190518
  Receipt Date: 20190518
  Transmission Date: 20190711
  Serious: Yes (Hospitalization, Other)
  Sender: FDA-Public Use
  Company Number: IT-AUROBINDO-AUR-APL-2019-025671

PATIENT

DRUGS (4)
  1. TOPAMAX [Concomitant]
     Active Substance: TOPIRAMATE
     Indication: PRODUCT USED FOR UNKNOWN INDICATION
     Dosage: UNK
     Route: 065
  2. PARIET [Concomitant]
     Active Substance: RABEPRAZOLE SODIUM
     Indication: PRODUCT USED FOR UNKNOWN INDICATION
     Dosage: UNK
     Route: 065
  3. SUMATRIPTAN. [Suspect]
     Active Substance: SUMATRIPTAN
     Indication: CLUSTER HEADACHE
     Dosage: 8 DOSAGE FORM, ONCE A DAY
     Route: 058
     Dates: start: 20171201, end: 20180307
  4. DELTACORTENE [Suspect]
     Active Substance: PREDNISONE
     Indication: CLUSTER HEADACHE
     Dosage: 75 MILLIGRAM, ONCE A DAY
     Route: 048
     Dates: start: 20171201, end: 20180307

REACTIONS (6)
  - Headache [Recovering/Resolving]
  - Drug abuse [Recovering/Resolving]
  - Leukocytosis [Recovering/Resolving]
  - Drug resistance [Recovering/Resolving]
  - Cushingoid [Recovering/Resolving]
  - Depression [Recovering/Resolving]

NARRATIVE: CASE EVENT DATE: 20180307
